FAERS Safety Report 25390333 (Version 1)
Quarter: 2025Q2

REPORT INFORMATION
  Report Type: Spontaneous
  Country: CN (occurrence: CN)
  Receive Date: 20250603
  Receipt Date: 20250603
  Transmission Date: 20250717
  Serious: Yes (Hospitalization, Other)
  Sender: STRIDES
  Company Number: CN-STRIDES ARCOLAB LIMITED-2025SP006687

PATIENT
  Age: 39 Year
  Sex: Female

DRUGS (14)
  1. DOXORUBICIN [Suspect]
     Active Substance: DOXORUBICIN
     Indication: Fibrosarcoma
     Route: 065
     Dates: start: 202209
  2. DOXORUBICIN [Suspect]
     Active Substance: DOXORUBICIN
     Route: 065
  3. ETOPOSIDE [Suspect]
     Active Substance: ETOPOSIDE
     Indication: Fibrosarcoma
     Route: 065
  4. IFOSFAMIDE [Suspect]
     Active Substance: IFOSFAMIDE
     Indication: Fibrosarcoma
     Route: 065
     Dates: start: 202209
  5. IFOSFAMIDE [Suspect]
     Active Substance: IFOSFAMIDE
     Route: 065
  6. SINTILIMAB [Suspect]
     Active Substance: SINTILIMAB
     Indication: Fibrosarcoma
     Route: 065
     Dates: start: 202209
  7. SINTILIMAB [Suspect]
     Active Substance: SINTILIMAB
     Route: 065
  8. SINTILIMAB [Suspect]
     Active Substance: SINTILIMAB
     Route: 065
     Dates: start: 2022
  9. BEVACIZUMAB [Suspect]
     Active Substance: BEVACIZUMAB
     Indication: Fibrosarcoma
     Route: 065
     Dates: start: 202302
  10. BEVACIZUMAB [Suspect]
     Active Substance: BEVACIZUMAB
     Route: 065
  11. SUGEMALIMAB [Suspect]
     Active Substance: SUGEMALIMAB
     Indication: Fibrosarcoma
     Route: 065
     Dates: start: 202302
  12. SUGEMALIMAB [Suspect]
     Active Substance: SUGEMALIMAB
     Route: 065
     Dates: start: 202305
  13. CARBOPLATIN [Suspect]
     Active Substance: CARBOPLATIN
     Indication: Fibrosarcoma
     Route: 065
  14. DOXORUBICIN HYDROCHLORIDE [Suspect]
     Active Substance: DOXORUBICIN HYDROCHLORIDE
     Indication: Fibrosarcoma
     Route: 065
     Dates: start: 2022

REACTIONS (4)
  - Pericardial effusion [Unknown]
  - Nausea [Unknown]
  - Neoplasm progression [Unknown]
  - Off label use [Unknown]

NARRATIVE: CASE EVENT DATE: 20220101
